FAERS Safety Report 10968775 (Version 2)
Quarter: 2015Q4

REPORT INFORMATION
  Report Type: Spontaneous
  Country: US (occurrence: US)
  Receive Date: 20150331
  Receipt Date: 20151217
  Transmission Date: 20160304
  Serious: Yes (Other)
  Sender: FDA-Public Use
  Company Number: US-UCBSA-101632

PATIENT
  Sex: Female

DRUGS (2)
  1. XYREM [Suspect]
     Active Substance: SODIUM OXYBATE
     Dosage: 3 G, 2X/DAY (BID); 500 MG/ML ;NIGHTLY
     Route: 048
     Dates: start: 201309
  2. XYREM [Suspect]
     Active Substance: SODIUM OXYBATE
     Indication: NARCOLEPSY
     Dosage: 2.25 G, 2X/DAY (BID); 500 MG/ML ;NIGHTLY
     Route: 048
     Dates: start: 201308, end: 2013

REACTIONS (6)
  - Fall [Recovered/Resolved]
  - Polyp [Unknown]
  - Eye contusion [Unknown]
  - Fatigue [Unknown]
  - Herpes zoster [Unknown]
  - Contusion [Unknown]

NARRATIVE: CASE EVENT DATE: 2013
